FAERS Safety Report 4653231-X (Version None)
Quarter: 2005Q2

REPORT INFORMATION
  Report Type: 
  Country: None (occurrence: None)
  Receive Date: 20050503
  Receipt Date: 20050420
  Transmission Date: 20051028
  Serious: Yes (Life-Threatening)
  Sender: FDA-Public Use
  Company Number: 2005063284

PATIENT
  Age: 64 Year
  Sex: Male
  Weight: 68 kg

DRUGS (8)
  1. CELECOXIB (CELECOXIB) [Suspect]
     Indication: ANALGESIC EFFECT
     Dosage: 200 MG (200 MG, 1 IN 1 D), ORAL
     Route: 048
     Dates: end: 20050407
  2. METHOTREXATE [Concomitant]
  3. SULFASALAZINE [Concomitant]
  4. FOLIC ACID [Concomitant]
  5. PANTOPRAZOLE (PANTOPRAZOLE) [Concomitant]
  6. PERINDOPRIL (PERINDOPRIL) [Concomitant]
  7. CLOPIDOGREL BISULFATE [Concomitant]
  8. CODEINE PHOSPHATE AND ACETAMINOPHEN [Concomitant]

REACTIONS (1)
  - ACUTE CORONARY SYNDROME [None]
